FAERS Safety Report 23813119 (Version 1)
Quarter: 2024Q2

REPORT INFORMATION
  Report Type: Spontaneous
  Country: US (occurrence: US)
  Receive Date: 20240503
  Receipt Date: 20240503
  Transmission Date: 20240716
  Serious: No
  Sender: FDA-Public Use
  Company Number: US-AMNEAL PHARMACEUTICALS-2023-AMRX-04129

PATIENT
  Sex: Male
  Weight: 5.986 kg

DRUGS (2)
  1. VIGABATRIN [Suspect]
     Active Substance: VIGABATRIN
     Indication: Seizure
     Dosage: DISSOLVE 1 PACKET IN 10 ML OF COLD OR ROOM TEMPERATURE WATER TO MAKE A 50 MG PER ML SOLUTION AND GIV
     Route: 048
     Dates: start: 20230915
  2. KEPPRA [Concomitant]
     Active Substance: LEVETIRACETAM
     Indication: Product used for unknown indication
     Dosage: UNK
     Route: 065

REACTIONS (1)
  - Somnolence [Recovering/Resolving]
